FAERS Safety Report 6200548-3 (Version None)
Quarter: 2009Q2

REPORT INFORMATION
  Report Type: 
  Country: None (occurrence: None)
  Receive Date: 20090522
  Receipt Date: 20080403
  Transmission Date: 20091009
  Serious: Yes (Other)
  Sender: FDA-Public Use
  Company Number: US-ALEXION-A200800077

PATIENT
  Sex: Female

DRUGS (21)
  1. SOLIRIS [Suspect]
     Indication: PAROXYSMAL NOCTURNAL HAEMOGLOBINURIA
     Dosage: 600 MG, SINGLE
     Route: 042
     Dates: start: 20070910, end: 20070910
  2. SOLIRIS [Suspect]
     Dosage: 600 MG, SINGLE
     Route: 042
     Dates: start: 20070917, end: 20070917
  3. SOLIRIS [Suspect]
     Dosage: 600 MG, SINGLE
     Route: 042
     Dates: start: 20070923, end: 20070923
  4. SOLIRIS [Suspect]
     Dosage: 600 MG, SINGLE
     Route: 042
     Dates: start: 20070930, end: 20070930
  5. SOLIRIS [Suspect]
     Dosage: 900 MG, SINGLE
     Route: 042
     Dates: start: 20071008, end: 20071008
  6. SOLIRIS [Suspect]
     Dosage: 900 MG, SINGLE
     Route: 042
     Dates: start: 20071212, end: 20071212
  7. SOLIRIS [Suspect]
     Dosage: 900 MG, SINGLE
     Route: 042
     Dates: start: 20071226, end: 20071226
  8. SOLIRIS [Suspect]
     Dosage: 900 MG, SINGLE
     Route: 042
     Dates: start: 20080110, end: 20080110
  9. SOLIRIS [Suspect]
     Dosage: 900 MG, SINGLE
     Route: 042
     Dates: start: 20080128, end: 20080128
  10. SOLIRIS [Suspect]
     Dosage: 900 MG, SINGLE
     Route: 042
     Dates: start: 20080207, end: 20080207
  11. SOLIRIS [Suspect]
     Dosage: 900 MG, SINGLE
     Route: 042
     Dates: start: 20080221, end: 20080221
  12. SOLIRIS [Suspect]
     Dosage: 900 MG, SINGLE
     Route: 042
     Dates: start: 20080311, end: 20080311
  13. SOLIRIS [Suspect]
     Dosage: 900 MG, SINGLE
     Route: 042
     Dates: start: 20080325, end: 20080325
  14. SOLIRIS [Suspect]
     Dosage: 900 MG, SINGLE
     Route: 042
     Dates: start: 20080401, end: 20080401
  15. COREG [Concomitant]
     Dosage: UNK, QD
     Route: 048
  16. CORTISONE [Concomitant]
     Dosage: UNK, QD
     Route: 048
  17. LASIX [Concomitant]
     Dosage: UNK, QD
     Route: 048
  18. LOVENOX [Concomitant]
     Dosage: UNK, QD
     Route: 048
  19. VYTORIN [Concomitant]
     Dosage: UNK, QD
     Route: 048
  20. FLORINEF [Concomitant]
     Dosage: UNK, QD
     Route: 048
  21. INSULIN [Concomitant]
     Indication: DIABETES MELLITUS
     Dosage: UNK, UNK

REACTIONS (1)
  - NEUROPATHY PERIPHERAL [None]
